FAERS Safety Report 13805081 (Version 1)
Quarter: 2017Q3

REPORT INFORMATION
  Report Type: Spontaneous
  Country: US (occurrence: US)
  Receive Date: 20170728
  Receipt Date: 20170728
  Transmission Date: 20171127
  Serious: No
  Sender: FDA-Public Use
  Company Number: US-PFIZER INC-2017324459

PATIENT
  Age: 68 Year
  Sex: Female

DRUGS (3)
  1. HYDROCODONE [Suspect]
     Active Substance: HYDROCODONE
     Dosage: UNK
  2. CODEINE [Suspect]
     Active Substance: CODEINE
     Dosage: UNK
  3. DEPO-MEDROL [Suspect]
     Active Substance: METHYLPREDNISOLONE ACETATE
     Dosage: UNK

REACTIONS (1)
  - Drug hypersensitivity [Unknown]
